FAERS Safety Report 6331914-3 (Version None)
Quarter: 2009Q3

REPORT INFORMATION
  Report Type: 
  Country: None (occurrence: None)
  Receive Date: 20090826
  Receipt Date: 20090820
  Transmission Date: 20100115
  Serious: Yes (Other)
  Sender: FDA-Public Use
  Company Number: 09US002652

PATIENT
  Age: 35 Year
  Sex: Female
  Weight: 68.9 kg

DRUGS (2)
  1. MUSCLE ULTR CRM 049 (CAMPHOR 4 %, MENTHOL 10 %, METHYL SALICYLATE 30 % [Suspect]
     Indication: JOINT SPRAIN
     Dosage: 1 APPLICATION, SINGLE, TOPICAL
     Route: 061
     Dates: start: 20090508, end: 20090508
  2. CONJUGATED ESTROGENS [Concomitant]

REACTIONS (15)
  - APPLICATION SITE SCAR [None]
  - BLISTER [None]
  - BLOOD PRESSURE INCREASED [None]
  - BURN INFECTION [None]
  - BURNING SENSATION [None]
  - BURNS SECOND DEGREE [None]
  - BURNS THIRD DEGREE [None]
  - CHEMICAL BURN OF SKIN [None]
  - HYPERSENSITIVITY [None]
  - IMPAIRED WORK ABILITY [None]
  - PAIN IN EXTREMITY [None]
  - PARAESTHESIA [None]
  - SKIN DISCOLOURATION [None]
  - SKIN EXFOLIATION [None]
  - SWELLING [None]
